FAERS Safety Report 20252523 (Version 1)
Quarter: 2021Q4

REPORT INFORMATION
  Report Type: Spontaneous
  Country: US (occurrence: US)
  Receive Date: 20211229
  Receipt Date: 20211229
  Transmission Date: 20220303
  Serious: Yes (Other)
  Sender: FDA-Public Use
  Company Number: US-COOPERSURGICAL, INC.-US-2021CPS001945

PATIENT
  Age: 28 Year
  Sex: Female
  Weight: 61.224 kg

DRUGS (1)
  1. PARAGARD T 380A [Suspect]
     Active Substance: COPPER
     Indication: Contraception
     Dosage: UNK
     Route: 015
     Dates: start: 201611, end: 20201005

REACTIONS (6)
  - Ectopic pregnancy with contraceptive device [Recovered/Resolved]
  - Complication of device removal [Recovered/Resolved]
  - Pain in extremity [Unknown]
  - Abdominal pain [Unknown]
  - Device expulsion [Recovered/Resolved]
  - Drug ineffective [Unknown]

NARRATIVE: CASE EVENT DATE: 20200101
